FAERS Safety Report 10010930 (Version 2)
Quarter: 2014Q2

REPORT INFORMATION
  Report Type: Spontaneous
  Country: CN (occurrence: CN)
  Receive Date: 20140314
  Receipt Date: 20140523
  Transmission Date: 20141212
  Serious: Yes (Other)
  Sender: FDA-Public Use
  Company Number: CN-JNJFOC-20140302309

PATIENT
  Age: 63 Year
  Sex: Male

DRUGS (2)
  1. FENTANYL TRANSDERMAL SYSTEM [Suspect]
     Indication: CANCER PAIN
     Dosage: 25.2 MG
     Route: 062
  2. MORPHINE [Suspect]
     Indication: CANCER PAIN
     Dosage: 10 MG/D TO 640 MG/D, AND THE MEDIAN DOSAGE IS 360 MG/D
     Route: 065

REACTIONS (5)
  - Hepatic function abnormal [Unknown]
  - Overdose [Unknown]
  - Miosis [Recovered/Resolved]
  - Respiratory depression [Recovering/Resolving]
  - Coma [Recovering/Resolving]
